FAERS Safety Report 8327792-3 (Version None)
Quarter: 2012Q2

REPORT INFORMATION
  Report Type: 
  Country: None (occurrence: None)
  Receive Date: 20120502
  Receipt Date: 20120427
  Transmission Date: 20120825
  Serious: No
  Sender: FDA-Public Use
  Company Number: US-PFIZER INC-2012105354

PATIENT
  Sex: Female

DRUGS (8)
  1. RAMIPRIL [Concomitant]
     Indication: HYPERTENSION
     Dosage: 10 MG, UNK
  2. LIPITOR [Concomitant]
     Indication: BLOOD CHOLESTEROL INCREASED
     Dosage: 40 MG, UNK
  3. LAMICTAL [Concomitant]
     Indication: DEPRESSION
     Dosage: 100 MG, 1X/DAY
  4. KLONOPIN [Concomitant]
     Indication: ANXIETY
     Dosage: 0.5 MG, UNK
  5. LEXAPRO [Concomitant]
     Indication: DEPRESSION
     Dosage: 20 MG, UNK
  6. REVATIO [Suspect]
     Indication: PULMONARY HYPERTENSION
     Dosage: 20 MG, 3X/DAY
  7. WELLBUTRIN SR [Concomitant]
     Indication: DEPRESSION
     Dosage: 200 MG, 2X/DAY
  8. PLAQUENIL [Concomitant]
     Dosage: 200 MG, 2X/DAY

REACTIONS (1)
  - DRUG INEFFECTIVE [None]
